FAERS Safety Report 17713990 (Version 2)
Quarter: 2020Q2

REPORT INFORMATION
  Report Type: Spontaneous
  Country: AU (occurrence: AU)
  Receive Date: 20200427
  Receipt Date: 20200601
  Transmission Date: 20200714
  Serious: No
  Sender: FDA-Public Use
  Company Number: AU-AMGEN-AUSSP2019194738

PATIENT
  Age: 33 Year
  Sex: Female

DRUGS (8)
  1. CALCIUM [Concomitant]
     Active Substance: CALCIUM
     Indication: PRE-ECLAMPSIA
     Dosage: 1200 UNK, QD
     Route: 048
     Dates: start: 20191210
  2. ONDASETRON [Concomitant]
     Active Substance: ONDANSETRON
     Indication: NAUSEA
     Dosage: 4-8 MILLIGRAM, AS NECESSARY
     Route: 048
     Dates: start: 20191210
  3. VITAMINE D [Concomitant]
     Active Substance: CHOLECALCIFEROL
     Indication: PROPHYLAXIS
     Dosage: 1000 UNK, QD
     Route: 048
     Dates: start: 20191210
  4. PROLIA [Suspect]
     Active Substance: DENOSUMAB
     Indication: OSTEOPOROSIS
     Dosage: 60 MILLIGRAM, Q6MO
     Route: 058
     Dates: start: 20180921, end: 20190321
  5. ONDASETRON [Concomitant]
     Active Substance: ONDANSETRON
     Indication: VOMITING
  6. ASPIRINE [Concomitant]
     Active Substance: ASPIRIN
     Dosage: 150 MILLIGRAM, QD
     Route: 048
     Dates: start: 20191210
  7. TRISEQUENS [Concomitant]
     Active Substance: ESTRADIOL\NORETHINDRONE ACETATE
     Indication: OVARIAN FAILURE
     Dosage: UNK
     Dates: end: 20191205
  8. ESOMEPRAZOLE. [Concomitant]
     Active Substance: ESOMEPRAZOLE MAGNESIUM
     Indication: GASTROOESOPHAGEAL REFLUX DISEASE
     Dosage: 20 MILLIGRAM, BID
     Route: 048
     Dates: start: 20191210

REACTIONS (1)
  - Maternal exposure during pregnancy [Not Recovered/Not Resolved]
